FAERS Safety Report 5490999-7 (Version None)
Quarter: 2007Q4

REPORT INFORMATION
  Report Type: 
  Country: None (occurrence: None)
  Receive Date: 20071019
  Receipt Date: 20071010
  Transmission Date: 20080405
  Serious: Yes (Other)
  Sender: FDA-Public Use
  Company Number: HR-PFIZER INC-2007054815

PATIENT
  Sex: Male
  Weight: 82 kg

DRUGS (2)
  1. ACCUPRO [Suspect]
     Indication: ESSENTIAL HYPERTENSION
     Route: 048
  2. ACCUPRO [Suspect]
     Route: 048

REACTIONS (1)
  - HAEMORRHOIDAL HAEMORRHAGE [None]
